FAERS Safety Report 11814860 (Version 1)
Quarter: 2015Q4

REPORT INFORMATION
  Report Type: Spontaneous
  Country: US (occurrence: US)
  Receive Date: 20151209
  Receipt Date: 20151209
  Transmission Date: 20160305
  Serious: No
  Sender: FDA-Public Use
  Company Number: US-SA-2015SA133246

PATIENT
  Age: 71 Year
  Sex: Female

DRUGS (4)
  1. NOVOLOG [Concomitant]
     Active Substance: INSULIN ASPART
  2. BYDUREON [Concomitant]
     Active Substance: EXENATIDE
  3. TOUJEO [Suspect]
     Active Substance: INSULIN GLARGINE
     Indication: TYPE 2 DIABETES MELLITUS
     Dosage: DOSE: STARTED ON 20U DAILY, INCREASING 2U EVERY 3-4 DAYS IF FBS}120
     Route: 065
     Dates: start: 2015
  4. SOLOSTAR [Concomitant]
     Active Substance: DEVICE

REACTIONS (4)
  - Weight decreased [Unknown]
  - Blood glucose decreased [Unknown]
  - Blood glucose increased [Unknown]
  - Incorrect product storage [Unknown]
